FAERS Safety Report 17089716 (Version 1)
Quarter: 2020Q3

REPORT INFORMATION
  Report Type: Report from Study
  Country: CN (occurrence: CN)
  Receive Date: 20191128
  Receipt Date: 20191128
  Transmission Date: 20201105
  Serious: Yes (Hospitalization, Other)
  Sender: FDA-Public Use
  Company Number: CN-BRISTOL-MYERS SQUIBB COMPANY-BMS-2019-112623

PATIENT
  Age: 65 Year
  Sex: Male

DRUGS (3)
  1. NIVOLUMAB [Suspect]
     Active Substance: NIVOLUMAB
     Indication: NON-SMALL CELL LUNG CANCER
     Dosage: 180 MILLIGRAM, Q2WK
     Route: 042
     Dates: start: 201908
  2. CATEQUENTINIB. [Suspect]
     Active Substance: CATEQUENTINIB
     Indication: NON-SMALL CELL LUNG CANCER
     Dosage: UNK
     Route: 065
  3. PACLITAXEL. [Suspect]
     Active Substance: PACLITAXEL
     Indication: NON-SMALL CELL LUNG CANCER
     Dosage: UNK
     Route: 065

REACTIONS (2)
  - Pneumothorax [Unknown]
  - Haemoptysis [Unknown]

NARRATIVE: CASE EVENT DATE: 20191028
